FAERS Safety Report 4294057-9 (Version None)
Quarter: 2004Q1

REPORT INFORMATION
  Report Type: 
  Country: None (occurrence: None)
  Receive Date: 20040211
  Receipt Date: 20040126
  Transmission Date: 20041129
  Serious: Yes (Death, Hospitalization, Other)
  Sender: FDA-Public Use
  Company Number: DSA_23935_2004

PATIENT
  Age: 54 Year
  Sex: Female

DRUGS (9)
  1. LORAZEPAM [Suspect]
     Dosage: 15 MG ONCE PO
     Route: 048
     Dates: start: 20040109, end: 20040109
  2. LORAZEPAM [Suspect]
     Dosage: VAR UNK PO
     Route: 048
  3. DAFLON [Suspect]
     Dosage: 500 MG BID PO
     Route: 048
     Dates: start: 20040112
  4. LEVOTHYROXINE SODIUM [Suspect]
     Indication: HYPOTHYROIDISM
     Dosage: 75 MG Q DAY PO
     Route: 048
  5. MIRTAZAPINE [Suspect]
     Dosage: 30 MG Q DAY PO
     Route: 048
     Dates: start: 20040112
  6. TAREG [Suspect]
     Indication: HYPERTENSION
     Dosage: 40 MG Q DAY PO
     Route: 048
     Dates: end: 20040111
  7. TAREG [Suspect]
     Indication: HYPERTENSION
     Dosage: 80 MG Q DAY PO
     Route: 048
     Dates: start: 20040112
  8. XANAX [Suspect]
     Dosage: 0.5 MG QID PO
     Route: 048
     Dates: start: 20040112
  9. EFFEXOR [Concomitant]

REACTIONS (3)
  - AGITATION [None]
  - INTENTIONAL OVERDOSE [None]
  - SELF MUTILATION [None]
